FAERS Safety Report 13049238 (Version 3)
Quarter: 2017Q3

REPORT INFORMATION
  Report Type: Spontaneous
  Country: AU (occurrence: AU)
  Receive Date: 20161221
  Receipt Date: 20170726
  Transmission Date: 20171127
  Serious: Yes (Life-Threatening, Hospitalization, Other)
  Sender: FDA-Public Use
  Company Number: AU-B.I. PHARMACEUTICALS,INC./RIDGEFIELD-2016-BI-085100

PATIENT
  Age: 69 Year
  Sex: Male
  Weight: 106 kg

DRUGS (6)
  1. SPIRONOLACTONE. [Concomitant]
     Active Substance: SPIRONOLACTONE
     Indication: PRODUCT USED FOR UNKNOWN INDICATION
     Route: 065
     Dates: start: 20161110
  2. GLICLAZIDE MR [Concomitant]
     Active Substance: GLICLAZIDE
     Indication: PRODUCT USED FOR UNKNOWN INDICATION
     Route: 065
     Dates: start: 20161108, end: 20161204
  3. ASPIRIN. [Suspect]
     Active Substance: ASPIRIN
     Indication: PRODUCT USED FOR UNKNOWN INDICATION
     Route: 065
  4. FRUSEMIDE [Concomitant]
     Active Substance: FUROSEMIDE
     Indication: PRODUCT USED FOR UNKNOWN INDICATION
     Route: 065
     Dates: start: 20161109
  5. JARDIANCE [Suspect]
     Active Substance: EMPAGLIFLOZIN
     Indication: TYPE 2 DIABETES MELLITUS
     Route: 065
     Dates: start: 20161110, end: 20161204
  6. METFORMIN [Suspect]
     Active Substance: METFORMIN HYDROCHLORIDE
     Indication: PRODUCT USED FOR UNKNOWN INDICATION
     Route: 065
     Dates: start: 20161108, end: 20161204

REACTIONS (9)
  - Lactic acidosis [Unknown]
  - Hyperkalaemia [Unknown]
  - Urinary tract infection [Recovered/Resolved]
  - Acute kidney injury [Recovered/Resolved with Sequelae]
  - Upper gastrointestinal haemorrhage [Unknown]
  - Diabetic ketoacidosis [Recovered/Resolved]
  - Hypotension [Unknown]
  - Glomerular filtration rate decreased [Recovered/Resolved with Sequelae]
  - Leukocyturia [Unknown]

NARRATIVE: CASE EVENT DATE: 20161204
